FAERS Safety Report 13610368 (Version 1)
Quarter: 2017Q2

REPORT INFORMATION
  Report Type: Spontaneous
  Country: US (occurrence: US)
  Receive Date: 20170602
  Receipt Date: 20170602
  Transmission Date: 20170830
  Serious: Yes (Other)
  Sender: FDA-Public Use
  Company Number: None

PATIENT
  Sex: Female

DRUGS (1)
  1. OPANA [Suspect]
     Active Substance: OXYMORPHONE HYDROCHLORIDE

REACTIONS (3)
  - Pain [None]
  - Loss of consciousness [None]
  - Sudden onset of sleep [None]
